FAERS Safety Report 9651647 (Version 1)
Quarter: 2013Q4

REPORT INFORMATION
  Report Type: Spontaneous
  Country: US (occurrence: US)
  Receive Date: 20131029
  Receipt Date: 20131029
  Transmission Date: 20140711
  Serious: No
  Sender: FDA-Public Use
  Company Number: US-BIOGENIDEC-2013BI073705

PATIENT
  Age: 59 Year
  Sex: Female

DRUGS (9)
  1. TECFIDERA [Suspect]
     Indication: MULTIPLE SCLEROSIS
     Route: 048
     Dates: start: 20130528, end: 20130603
  2. TECFIDERA [Suspect]
     Indication: MULTIPLE SCLEROSIS
     Route: 048
     Dates: start: 20130604, end: 20130614
  3. PRAVASTATIN [Concomitant]
  4. VALACYCLOVIR [Concomitant]
  5. HYDROXCHLOROQUINE SULFATE [Concomitant]
  6. TAMSULOSIN [Concomitant]
  7. PENTASA [Concomitant]
  8. CELEBREX [Concomitant]
  9. LYRICA [Concomitant]

REACTIONS (3)
  - Abdominal pain upper [Not Recovered/Not Resolved]
  - Vomiting [Not Recovered/Not Resolved]
  - Diarrhoea [Not Recovered/Not Resolved]
